FAERS Safety Report 7007475-2 (Version None)
Quarter: 2010Q3

REPORT INFORMATION
  Report Type: 
  Country: None (occurrence: None)
  Receive Date: 20100922
  Receipt Date: 20100914
  Transmission Date: 20110219
  Serious: Yes (Hospitalization)
  Sender: FDA-Public Use
  Company Number: FR-JNJFOC-20100904722

PATIENT
  Age: 86 Year
  Sex: Female

DRUGS (3)
  1. TAVANIC [Suspect]
     Indication: LUNG DISORDER
     Route: 042
  2. VANCOMYCIN HCL [Suspect]
     Indication: LUNG DISORDER
     Route: 042
  3. CLAVENTIN [Suspect]
     Indication: LUNG DISORDER
     Route: 042

REACTIONS (7)
  - CHEILITIS [None]
  - DRUG RASH WITH EOSINOPHILIA AND SYSTEMIC SYMPTOMS [None]
  - EOSINOPHILIA [None]
  - GENERALISED OEDEMA [None]
  - MIXED LIVER INJURY [None]
  - PYREXIA [None]
  - TOXIC SKIN ERUPTION [None]
